FAERS Safety Report 12855859 (Version 1)
Quarter: 2016Q4

REPORT INFORMATION
  Report Type: Spontaneous
  Country: RU (occurrence: RU)
  Receive Date: 20161018
  Receipt Date: 20161018
  Transmission Date: 20170207
  Serious: Yes (Hospitalization, Other)
  Sender: FDA-Public Use
  Company Number: RU-ASTRAZENECA-2016SF07658

PATIENT
  Age: 62 Year
  Sex: Male
  Weight: 80 kg

DRUGS (9)
  1. DIUVER [Concomitant]
     Active Substance: TORSEMIDE
  2. PLAVIX [Concomitant]
     Active Substance: CLOPIDOGREL BISULFATE
  3. NOOPEPT [Concomitant]
  4. DIABETON [Concomitant]
  5. ONGLYZA [Suspect]
     Active Substance: SAXAGLIPTIN HYDROCHLORIDE
     Indication: TYPE 2 DIABETES MELLITUS
     Route: 048
     Dates: start: 2013
  6. DIROTON [Concomitant]
  7. CONCOR [Concomitant]
     Active Substance: BISOPROLOL FUMARATE
  8. SIOFOR [Concomitant]
     Active Substance: METFORMIN HYDROCHLORIDE
  9. VEROSPIRON [Concomitant]
     Active Substance: SPIRONOLACTONE

REACTIONS (1)
  - Acute myocardial infarction [Recovered/Resolved]

NARRATIVE: CASE EVENT DATE: 20160910
